FAERS Safety Report 24243274 (Version 4)
Quarter: 2024Q4

REPORT INFORMATION
  Report Type: Report from Study
  Country: US (occurrence: US)
  Receive Date: 20240823
  Receipt Date: 20241117
  Transmission Date: 20250114
  Serious: Yes (Hospitalization, Other)
  Sender: ABBVIE
  Company Number: US-ABBVIE-5885522

PATIENT
  Age: 65 Year
  Sex: Female
  Weight: 97 kg

DRUGS (34)
  1. RINVOQ [Suspect]
     Active Substance: UPADACITINIB
     Indication: Ankylosing spondylitis
     Dosage: FORM STRENGTH 15 MG
     Route: 048
     Dates: start: 202306, end: 2024
  2. RINVOQ [Suspect]
     Active Substance: UPADACITINIB
     Indication: Ankylosing spondylitis
     Dosage: FORM STRENGTH 15 MG
     Route: 048
     Dates: start: 2022
  3. RINVOQ [Suspect]
     Active Substance: UPADACITINIB
     Indication: Ankylosing spondylitis
     Dosage: FORM STRENGTH 15 MG
     Route: 048
     Dates: start: 2024
  4. PILOCARPINE [Concomitant]
     Active Substance: PILOCARPINE
     Indication: Sjogren^s syndrome
     Dosage: UP TO 8X^S/DAY
     Route: 048
  5. GABAPENTIN [Concomitant]
     Active Substance: GABAPENTIN
     Indication: Neuralgia
     Dosage: TIME INTERVAL: 0.33333333 DAYS
     Route: 048
  6. ACETAMINOPHEN\HYDROCODONE [Concomitant]
     Active Substance: ACETAMINOPHEN\HYDROCODONE
     Indication: Pain
     Dosage: 7.5-325 TABLET TWO TIMES PER DAY AS NEEDED
     Route: 048
  7. LEVOTHYROXINE [Concomitant]
     Active Substance: LEVOTHYROXINE
     Indication: Thyroid disorder
     Route: 048
  8. REFRESH CLASSIC [Concomitant]
     Active Substance: POLYVINYL ALCOHOL\POVIDONE
     Indication: Sjogren^s syndrome
     Dosage: TIME INTERVAL: 0.33333333 DAYS: 1-2 DROPS IN BOTH EYES
     Route: 065
  9. ALPRAZOLAM [Concomitant]
     Active Substance: ALPRAZOLAM
     Indication: Anxiety
     Dosage: TIME INTERVAL: AS NECESSARY: 1 DOSAGE FORM THREE TIMES A DAY
     Route: 065
  10. CYCLOBENZAPRINE [Concomitant]
     Active Substance: CYCLOBENZAPRINE
     Indication: Inflammation
     Dosage: STRENGTH 10 MG (1 TO 2 TABLET TWI TIME DAILY)
     Route: 048
  11. NARCAN [Concomitant]
     Active Substance: NALOXONE HYDROCHLORIDE
     Indication: Product used for unknown indication
     Dosage: USE AS DIRECTED
     Route: 065
  12. OMEGA 3 [Concomitant]
     Active Substance: CAPSAICIN
     Indication: Immunomodulatory therapy
     Dosage: SOFTGEL
     Route: 065
  13. VITAMIN D3 [Concomitant]
     Active Substance: CHOLECALCIFEROL
     Indication: Vitamin supplementation
     Route: 065
  14. MAGNESIUM CITRATE [Concomitant]
     Active Substance: MAGNESIUM CITRATE
     Indication: Mineral supplementation
     Dosage: STRENGTH 250 MG
     Route: 065
  15. LACTOBACILLUS ACIDOPHILUS [Concomitant]
     Active Substance: LACTOBACILLUS ACIDOPHILUS
     Indication: Dyspepsia
     Dosage: 100 MILLION TABLET (DAILY)
     Route: 048
  16. ALBUTEROL SULFATE [Concomitant]
     Active Substance: ALBUTEROL SULFATE
     Indication: Dyspnoea
     Dosage: STRENGTH: 0.63 MG/3ML UP TO THREE TIMES DAILY
     Route: 065
  17. LATANOPROST [Concomitant]
     Active Substance: LATANOPROST
     Indication: Glaucoma
     Dosage: STRENGTH: 125 MICROGRAM (1 DROP IN EACH EYE AT NIGHT)
     Route: 047
  18. CANNABIS SATIVA SUBSP. INDICA TOP [Concomitant]
     Active Substance: CANNABIS SATIVA SUBSP. INDICA TOP
     Indication: Neuropathy peripheral
     Dosage: 1 DROPPERFUL (1:1) AT NIGHT
     Route: 065
  19. VENLAFAXINE [Concomitant]
     Active Substance: VENLAFAXINE HYDROCHLORIDE
     Indication: Depression
     Dosage: IN AM
     Route: 065
  20. ESOMEPRAZOLE MAGNESIUM [Concomitant]
     Active Substance: ESOMEPRAZOLE MAGNESIUM
     Indication: Antacid therapy
     Route: 048
  21. ADDERALL [Concomitant]
     Active Substance: AMPHETAMINE ASPARTATE\AMPHETAMINE SULFATE\DEXTROAMPHETAMINE SACCHARATE\DEXTROAMPHETAMINE SULFATE
     Indication: Fibromyalgia
     Route: 048
  22. NURTEC ODT [Concomitant]
     Active Substance: RIMEGEPANT SULFATE
     Indication: Migraine
     Dosage: TIME INTERVAL: AS NECESSARY: ONE TABLET
     Route: 048
  23. CALCIUM [Concomitant]
     Active Substance: CALCIUM
     Indication: Osteoporosis
     Route: 048
  24. RECLAST [Concomitant]
     Active Substance: ZOLEDRONIC ACID
     Indication: Osteoporosis
     Route: 041
  25. FENOFIBRATE [Concomitant]
     Active Substance: FENOFIBRATE
     Indication: Blood cholesterol
     Route: 048
  26. HYDROXYZINE HYDROCHLORIDE [Concomitant]
     Active Substance: HYDROXYZINE HYDROCHLORIDE
     Indication: Neurodermatitis
     Dosage: DOSE OF 1-2 TABLET WITH TWICE DAILY OR AS NEEDED FREQUENCY
     Route: 048
  27. FLUTICASONE PROPIONATE [Concomitant]
     Active Substance: FLUTICASONE PROPIONATE
     Indication: Multiple allergies
     Dosage: STRENGTH OF 50 MCG (2 SPRAYS IN EACH NOSTRIL DAILY)
     Route: 045
  28. INFLUENZA VIRUS VACCINE [Concomitant]
     Active Substance: INFLUENZA VIRUS VACCINE
     Indication: Influenza
  29. UNSPECIFIED INGREDIENT [Concomitant]
     Active Substance: UNSPECIFIED INGREDIENT
     Indication: Respiratory syncytial virus infection
  30. MUPIROCIN [Concomitant]
     Active Substance: MUPIROCIN
     Indication: Dermatitis
     Dosage: FORM STRENGTH 2 %
     Route: 065
  31. FOLIC ACID [Concomitant]
     Active Substance: FOLIC ACID
     Indication: Gastrooesophageal reflux disease
     Route: 048
  32. ZINC [Concomitant]
     Active Substance: ZINC
     Indication: Routine health maintenance
     Dosage: TWO DOAGE FORM
  33. QUETIAPINE [Concomitant]
     Active Substance: QUETIAPINE
     Indication: Insomnia
     Route: 048
  34. METHOTREXATE [Concomitant]
     Active Substance: METHOTREXATE
     Indication: Arthritis
     Route: 048

REACTIONS (9)
  - Lumbar vertebral fracture [Recovered/Resolved]
  - Venous occlusion [Unknown]
  - Vitreous floaters [Not Recovered/Not Resolved]
  - Fall [Unknown]
  - Intervertebral disc protrusion [Unknown]
  - Spinal osteoarthritis [Unknown]
  - Intervertebral disc space narrowing [Unknown]
  - Traumatic pain [Unknown]
  - Accident [Unknown]

NARRATIVE: CASE EVENT DATE: 20230101
